FAERS Safety Report 9261534 (Version 1)
Quarter: 2013Q2

REPORT INFORMATION
  Report Type: Spontaneous
  Country: JP (occurrence: JP)
  Receive Date: 20130429
  Receipt Date: 20130429
  Transmission Date: 20140414
  Serious: Yes (Other)
  Sender: FDA-Public Use
  Company Number: PHHY2013JP034003

PATIENT
  Age: 66 Year
  Sex: Female

DRUGS (10)
  1. IMATINIB [Suspect]
     Indication: GASTROINTESTINAL STROMAL TUMOUR
     Dosage: 400 MG, QD
  2. IMATINIB [Suspect]
     Dosage: 1 MG, UNK
     Route: 048
  3. IMATINIB [Suspect]
     Dosage: 2 MG, UNK
     Route: 048
  4. IMATINIB [Suspect]
     Dosage: 5 MG, UNK
     Route: 048
  5. IMATINIB [Suspect]
     Dosage: 10 MG, UNK
     Route: 048
  6. IMATINIB [Suspect]
     Dosage: 20 MG, UNK
     Route: 048
  7. IMATINIB [Suspect]
     Dosage: 50 MG, UNK
     Route: 048
  8. IMATINIB [Suspect]
     Dosage: 100 MG, UNK
     Route: 048
  9. IMATINIB [Suspect]
     Dosage: 200 MG, UNK
     Route: 048
  10. IMATINIB [Suspect]
     Dosage: 400 MG, UNK
     Route: 048

REACTIONS (8)
  - Metastases to liver [Not Recovered/Not Resolved]
  - Hepatic lesion [Not Recovered/Not Resolved]
  - Metastases to peritoneum [Recovering/Resolving]
  - Peritoneal lesion [Recovering/Resolving]
  - Hepatic cyst [Unknown]
  - Drug eruption [Unknown]
  - Rash [Recovering/Resolving]
  - Abdominal pain lower [Unknown]
